FAERS Safety Report 7963676-8 (Version None)
Quarter: 2011Q4

REPORT INFORMATION
  Report Type: 
  Country: None (occurrence: None)
  Receive Date: 20111208
  Receipt Date: 20110826
  Transmission Date: 20120403
  Serious: No
  Sender: FDA-Public Use
  Company Number: US-BAYER-2011-079911

PATIENT
  Age: 77 Year
  Sex: Female

DRUGS (3)
  1. ANTIHYPERTENSIVES [Concomitant]
  2. THYROID TAB [Concomitant]
  3. CIPROFLOXACIN [Suspect]
     Indication: EYELID INFECTION
     Dosage: 500 MG, UNK
     Route: 048

REACTIONS (1)
  - ALOPECIA [None]
